FAERS Safety Report 6638308-1 (Version None)
Quarter: 2010Q1

REPORT INFORMATION
  Report Type: 
  Country: None (occurrence: None)
  Receive Date: 20100317
  Receipt Date: 20100310
  Transmission Date: 20100710
  Serious: Yes (Death)
  Sender: FDA-Public Use
  Company Number: JP-ROCHE-690960

PATIENT
  Sex: Female

DRUGS (1)
  1. AVASTIN [Suspect]
     Indication: RADIATION NECROSIS
     Route: 041
     Dates: start: 20100129, end: 20100212

REACTIONS (1)
  - BASILAR ARTERY OCCLUSION [None]
